FAERS Safety Report 8259332-1 (Version None)
Quarter: 2012Q2

REPORT INFORMATION
  Report Type: 
  Country: None (occurrence: None)
  Receive Date: 20120404
  Receipt Date: 20120328
  Transmission Date: 20120825
  Serious: Yes (Other)
  Sender: FDA-Public Use
  Company Number: US-UCBSA-054374

PATIENT

DRUGS (1)
  1. VIMPAT [Suspect]

REACTIONS (1)
  - ATRIAL FIBRILLATION [None]
